FAERS Safety Report 9879674 (Version 2)
Quarter: 2014Q1

REPORT INFORMATION
  Report Type: Spontaneous
  Country: JP (occurrence: JP)
  Receive Date: 20140206
  Receipt Date: 20140219
  Transmission Date: 20141002
  Serious: Yes (Other)
  Sender: FDA-Public Use
  Company Number: JP-B.I. PHARMACEUTICALS,INC./RIDGEFIELD-2014-BI-04604GD

PATIENT
  Age: 78 Year
  Sex: Male

DRUGS (12)
  1. MELOXICAM [Suspect]
     Indication: METASTATIC PAIN
     Dosage: 15 MG
  2. MELOXICAM [Suspect]
     Indication: PAIN IN EXTREMITY
  3. PARACETAMOL [Suspect]
     Indication: METASTATIC PAIN
     Dosage: 2400 MG
  4. PARACETAMOL [Suspect]
     Indication: PAIN IN EXTREMITY
  5. DICLOFENAC SODIUM [Suspect]
     Indication: PYREXIA
     Route: 054
  6. FLURBIPROFEN [Suspect]
     Indication: PYREXIA
     Dosage: 50 MG
  7. LOXOPROFEN [Suspect]
     Indication: PYREXIA
     Dosage: 120 MG
  8. METHYLPREDNISOLONE [Suspect]
     Indication: PRODUCT USED FOR UNKNOWN INDICATION
     Dosage: 250 MG
  9. PREGABALIN [Suspect]
     Indication: METASTATIC PAIN
     Dosage: 200 MG
  10. PREGABALIN [Suspect]
     Indication: PAIN IN EXTREMITY
  11. FENTANYL CITRATE [Suspect]
     Indication: METASTATIC PAIN
     Route: 062
  12. FENTANYL CITRATE [Suspect]
     Indication: PAIN IN EXTREMITY

REACTIONS (8)
  - Peritonitis [Unknown]
  - Large intestinal ulcer perforation [Unknown]
  - Large intestinal ulcer [Unknown]
  - Septic shock [Unknown]
  - Lung infection [Unknown]
  - Renal failure chronic [Unknown]
  - Pulmonary oedema [Unknown]
  - Hypoalbuminaemia [Unknown]
